FAERS Safety Report 10009584 (Version 1)
Quarter: 2014Q1

REPORT INFORMATION
  Report Type: Spontaneous
  Country: US (occurrence: US)
  Receive Date: 20140312
  Receipt Date: 20140312
  Transmission Date: 20141002
  Serious: No
  Sender: FDA-Public Use
  Company Number: US-INCYTE CORPORATION-2012IN002157

PATIENT
  Age: 65 Year
  Sex: Male

DRUGS (5)
  1. JAKAFI [Suspect]
     Indication: MYELOFIBROSIS
     Dosage: 5 MG, BID
     Route: 048
     Dates: start: 20120919, end: 201210
  2. JAKAFI [Suspect]
     Dosage: 10 MG, BID
     Route: 048
     Dates: start: 201210
  3. ALLOPURINOL [Concomitant]
     Dosage: 100 MG, QD
  4. VITAMIN C [Concomitant]
     Dosage: 1 TO 2 G
     Dates: end: 201209
  5. VITAMIN C [Concomitant]
     Dosage: 3 TO 4 G
     Dates: start: 201209

REACTIONS (2)
  - Oral mucosal blistering [Not Recovered/Not Resolved]
  - Alopecia [Not Recovered/Not Resolved]
